FAERS Safety Report 21353326 (Version 1)
Quarter: 2022Q3

REPORT INFORMATION
  Report Type: Spontaneous
  Country: RU (occurrence: RU)
  Receive Date: 20220920
  Receipt Date: 20220920
  Transmission Date: 20221027
  Serious: No
  Sender: FDA-Public Use
  Company Number: RU-ALKEM LABORATORIES LIMITED-RU-ALKEM-2022-08132

PATIENT

DRUGS (2)
  1. METOPROLOL SUCCINATE [Suspect]
     Active Substance: METOPROLOL SUCCINATE
     Indication: Acute myocardial infarction
     Dosage: MEAN DOSE 75 +/- 39 MG/DAY
     Route: 065
  2. PAROXETINE [Suspect]
     Active Substance: PAROXETINE
     Indication: Acute myocardial infarction
     Dosage: 20 MILLIGRAM DAILY
     Route: 065

REACTIONS (2)
  - Orthostatic hypotension [Unknown]
  - Drug interaction [Unknown]
